FAERS Safety Report 9819405 (Version 1)
Quarter: 2014Q1

REPORT INFORMATION
  Report Type: Spontaneous
  Country: GB (occurrence: GB)
  Receive Date: 20140115
  Receipt Date: 20140115
  Transmission Date: 20141002
  Serious: Yes (Other)
  Sender: FDA-Public Use
  Company Number: PHHY2014GB003559

PATIENT
  Age: 39 Year
  Sex: Female

DRUGS (1)
  1. CICLOSPORIN [Suspect]
     Indication: GUTTATE PSORIASIS
     Dosage: 8 MG/KG, DAILY
     Dates: start: 1987

REACTIONS (3)
  - Foetal growth restriction [Unknown]
  - Premature labour [Unknown]
  - Exposure during pregnancy [Unknown]
